FAERS Safety Report 13396517 (Version 1)
Quarter: 2017Q2

REPORT INFORMATION
  Report Type: Spontaneous
  Country: GB (occurrence: GB)
  Receive Date: 20170403
  Receipt Date: 20170403
  Transmission Date: 20170830
  Serious: Yes (Hospitalization)
  Sender: FDA-Public Use
  Company Number: GB-JNJFOC-20170334156

PATIENT
  Age: 71 Year
  Sex: Male
  Weight: 60 kg

DRUGS (5)
  1. ALLOPURINOL. [Concomitant]
     Active Substance: ALLOPURINOL
     Route: 065
  2. HYDROXYCARBAMIDE [Concomitant]
     Active Substance: HYDROXYUREA
     Route: 065
  3. CANDESARTAN CILEXETIL. [Concomitant]
     Active Substance: CANDESARTAN CILEXETIL
     Route: 065
  4. BISOPROLOL FUMARATE. [Concomitant]
     Active Substance: BISOPROLOL FUMARATE
     Route: 065
  5. XARELTO [Suspect]
     Active Substance: RIVAROXABAN
     Indication: ATRIAL FIBRILLATION
     Route: 048

REACTIONS (11)
  - Restlessness [Recovering/Resolving]
  - Confusional state [Recovered/Resolved]
  - Delirium [Recovering/Resolving]
  - Hyponatraemia [Recovered/Resolved]
  - Agitation [Recovering/Resolving]
  - Delusion [Recovering/Resolving]
  - Hallucination [Recovering/Resolving]
  - Nervous system disorder [Unknown]
  - Aggression [Recovering/Resolving]
  - Abnormal behaviour [Recovering/Resolving]
  - Nightmare [Not Recovered/Not Resolved]
